FAERS Safety Report 8479616-1 (Version None)
Quarter: 2012Q2

REPORT INFORMATION
  Report Type: 
  Country: None (occurrence: None)
  Receive Date: 20120629
  Receipt Date: 20120627
  Transmission Date: 20120825
  Serious: No
  Sender: FDA-Public Use
  Company Number: US-PFIZER INC-2012155781

PATIENT
  Sex: Female
  Weight: 56.689 kg

DRUGS (4)
  1. IBUPROFEN (ADVIL) [Suspect]
     Dosage: UNK
  2. LEVOTHYROXINE [Concomitant]
     Indication: THYROID DISORDER
     Dosage: 125 UG, DAILY
  3. IBUPROFEN (ADVIL) [Suspect]
     Indication: PAIN
  4. IBUPROFEN (ADVIL) [Suspect]
     Indication: OSTEOPOROSIS
     Dosage: UNK, 2X/DAY
     Dates: start: 20120601

REACTIONS (2)
  - DIARRHOEA [None]
  - DRUG INEFFECTIVE [None]
